FAERS Safety Report 4521968-9 (Version None)
Quarter: 2004Q4

REPORT INFORMATION
  Report Type: 
  Country: None (occurrence: None)
  Receive Date: 20041206
  Receipt Date: 20041124
  Transmission Date: 20050328
  Serious: Yes (Hospitalization, Other)
  Sender: FDA-Public Use
  Company Number: 2004097737

PATIENT
  Age: 80 Year
  Sex: Female

DRUGS (4)
  1. FELDENE [Suspect]
     Indication: ILL-DEFINED DISORDER
     Dosage: ORAL
     Route: 048
     Dates: end: 20040503
  2. CAPTOPRIL [Concomitant]
  3. CELIPROLOL (CELIPROLOL) [Concomitant]
  4. AMLODIPINE BESYLATE [Concomitant]

REACTIONS (4)
  - DIARRHOEA [None]
  - HYPOALBUMINAEMIA [None]
  - NORMOCHROMIC NORMOCYTIC ANAEMIA [None]
  - RECTAL HAEMORRHAGE [None]
